FAERS Safety Report 5268872-9 (Version None)
Quarter: 2007Q1

REPORT INFORMATION
  Report Type: 
  Country: None (occurrence: None)
  Receive Date: 20061212
  Receipt Date: 20040305
  Transmission Date: 20070707
  Serious: No
  Sender: FDA-Public Use
  Company Number: 2004UW02298

PATIENT
  Age: 66 Year
  Sex: Male
  Weight: 72.5755 kg

DRUGS (7)
  1. CASODEX [Suspect]
     Indication: PROSTATE CANCER
     Dosage: 50 MG QD PO
     Route: 048
     Dates: start: 20031104, end: 20031208
  2. CARDIZEM CD [Concomitant]
  3. TENORMIN [Concomitant]
  4. PLAVIX [Concomitant]
  5. LESCOL XL [Concomitant]
  6. LUPRON [Concomitant]
  7. ZOCOR [Concomitant]

REACTIONS (1)
  - BLOOD CHOLESTEROL INCREASED [None]
